FAERS Safety Report 20737693 (Version 1)
Quarter: 2022Q2

REPORT INFORMATION
  Report Type: Report from Study
  Country: US (occurrence: US)
  Receive Date: 20220422
  Receipt Date: 20220422
  Transmission Date: 20220721
  Serious: Yes (Other)
  Sender: FDA-Public Use
  Company Number: US-BEH-2021127667

PATIENT
  Age: 12 Year
  Sex: Female
  Weight: 47.619 kg

DRUGS (2)
  1. HAEGARDA [Suspect]
     Active Substance: HUMAN C1-ESTERASE INHIBITOR
     Indication: Hereditary angioedema
     Dosage: 3000 INTERNATIONAL UNIT, BIW
     Route: 058
     Dates: start: 20201123, end: 202201
  2. HAEGARDA [Suspect]
     Active Substance: HUMAN C1-ESTERASE INHIBITOR
     Indication: Prophylaxis

REACTIONS (11)
  - Hereditary angioedema [Recovered/Resolved]
  - Infusion site reaction [Recovered/Resolved]
  - Injection site pain [Recovered/Resolved]
  - No adverse event [Recovered/Resolved]
  - Inappropriate schedule of product administration [Recovered/Resolved]
  - Lip swelling [Unknown]
  - Eye swelling [Unknown]
  - Disease prodromal stage [Unknown]
  - Hereditary angioedema [Recovered/Resolved]
  - Discomfort [Unknown]
  - Swelling [Unknown]

NARRATIVE: CASE EVENT DATE: 20201101
